FAERS Safety Report 4947457-5 (Version None)
Quarter: 2006Q1

REPORT INFORMATION
  Report Type: 
  Country: None (occurrence: None)
  Receive Date: 20060320
  Receipt Date: 20060310
  Transmission Date: 20060701
  Serious: Yes (Hospitalization)
  Sender: FDA-Public Use
  Company Number: FR-SP-2006-00572

PATIENT
  Age: 82 Year
  Sex: Male

DRUGS (9)
  1. IMMUCYST [Suspect]
     Indication: BLADDER CANCER
     Route: 043
     Dates: start: 20060111
  2. IMMUCYST [Suspect]
     Route: 043
     Dates: start: 20060111
  3. OFLOXACIN [Suspect]
     Route: 042
     Dates: start: 20060118, end: 20060208
  4. ACETAMINOPHEN [Suspect]
     Route: 042
     Dates: start: 20060116, end: 20060201
  5. PREVISCAN (FLUINDIONE) [Concomitant]
  6. LOGIRENE (FUROSEMIDE-AMILORIDE) [Concomitant]
  7. FLECAINE (FLECAINIDE) [Concomitant]
  8. JOSIR (TAMSULOSINE) [Concomitant]
  9. HYPERIUM (RILMENIDINE) [Concomitant]

REACTIONS (3)
  - ALANINE AMINOTRANSFERASE INCREASED [None]
  - BLOOD ALKALINE PHOSPHATASE INCREASED [None]
  - PYREXIA [None]
